FAERS Safety Report 16170468 (Version 1)
Quarter: 2019Q2

REPORT INFORMATION
  Report Type: Spontaneous
  Country: NL (occurrence: NL)
  Receive Date: 20190408
  Receipt Date: 20190408
  Transmission Date: 20190711
  Serious: Yes (Other)
  Sender: FDA-Public Use
  Company Number: NL-PFIZER INC-2019144057

PATIENT
  Age: 25 Year
  Sex: Male
  Weight: 110 kg

DRUGS (1)
  1. AZITHROMYCIN ANHYDROUS. [Suspect]
     Active Substance: AZITHROMYCIN ANHYDROUS
     Indication: LYMPHADENITIS
     Dosage: 500 MG, 1X/DAY
     Dates: start: 20190215, end: 20190217

REACTIONS (12)
  - Listless [Recovering/Resolving]
  - Tunnel vision [Recovering/Resolving]
  - Headache [Recovering/Resolving]
  - Myalgia [Recovering/Resolving]
  - Dizziness [Recovering/Resolving]
  - Blood pressure abnormal [Recovering/Resolving]
  - Fatigue [Recovering/Resolving]
  - Heart rate abnormal [Recovering/Resolving]
  - Paraesthesia [Recovering/Resolving]
  - Eructation [Recovering/Resolving]
  - Chest pain [Recovering/Resolving]
  - Palpitations [Recovering/Resolving]

NARRATIVE: CASE EVENT DATE: 20190215
